FAERS Safety Report 9819231 (Version 3)
Quarter: 2014Q1

REPORT INFORMATION
  Report Type: Spontaneous
  Country: BR (occurrence: BR)
  Receive Date: 20140115
  Receipt Date: 20140203
  Transmission Date: 20141002
  Serious: Yes (Hospitalization)
  Sender: FDA-Public Use
  Company Number: BR-009507513-1401BRA004896

PATIENT
  Sex: Male

DRUGS (9)
  1. VICTRELIS [Suspect]
     Indication: HEPATITIS C
     Dosage: 800 MG, TID
     Route: 048
     Dates: start: 20130617, end: 2013
  2. VICTRELIS [Suspect]
     Dosage: 800 MG, TID
     Route: 048
     Dates: start: 2013
  3. PEGASYS [Concomitant]
     Indication: HEPATITIS C
     Dosage: 180 MICROGRAM, QW
     Route: 058
     Dates: start: 20130523, end: 2013
  4. PEGASYS [Concomitant]
     Dosage: 180 MICROGRAM, QW
     Route: 058
     Dates: start: 2013
  5. RIBAVIRIN (NON-MERCK) [Concomitant]
     Indication: HEPATITIS C
     Dosage: 500 MG, QAM
     Route: 048
     Dates: start: 20130523, end: 2013
  6. RIBAVIRIN (NON-MERCK) [Concomitant]
     Dosage: 250 MG, QPM
     Route: 048
     Dates: start: 20130523, end: 2013
  7. RIBAVIRIN (NON-MERCK) [Concomitant]
     Dosage: 500 MG, QAM
     Route: 048
     Dates: start: 2013
  8. RIBAVIRIN (NON-MERCK) [Concomitant]
     Dosage: 250 MG, QPM
     Route: 048
     Dates: start: 2013
  9. AMITRIPTYLINE HYDROCHLORIDE (NON-MERCK) [Concomitant]
     Indication: INSOMNIA
     Dosage: 1 TABLET, QPM
     Route: 048
     Dates: start: 201201

REACTIONS (6)
  - Respiratory tract infection bacterial [Recovered/Resolved]
  - Anaemia [Not Recovered/Not Resolved]
  - Arthralgia [Not Recovered/Not Resolved]
  - Asthenia [Recovered/Resolved]
  - Decreased appetite [Not Recovered/Not Resolved]
  - Fatigue [Recovered/Resolved]
